FAERS Safety Report 11310331 (Version 1)
Quarter: 2015Q3

REPORT INFORMATION
  Report Type: Spontaneous
  Country: JP (occurrence: JP)
  Receive Date: 20150724
  Receipt Date: 20150724
  Transmission Date: 20151125
  Serious: Yes (Life-Threatening, Other)
  Sender: FDA-Public Use
  Company Number: JP-ASTRAZENECA-2015SE71850

PATIENT
  Age: 38 Year
  Sex: Female

DRUGS (3)
  1. COMMON COLD AGENT [Concomitant]
     Dates: start: 20150717, end: 20150717
  2. SEROQUEL [Suspect]
     Active Substance: QUETIAPINE FUMARATE
     Indication: PRODUCT USED FOR UNKNOWN INDICATION
     Route: 048
     Dates: start: 20150717, end: 20150717
  3. ANTIDEPRESSIVE AGENT [Concomitant]
     Dates: start: 20150717, end: 20150717

REACTIONS (3)
  - Suicide attempt [Unknown]
  - Overdose [Unknown]
  - Somnolence [Unknown]

NARRATIVE: CASE EVENT DATE: 20150717
